FAERS Safety Report 11677960 (Version 1)
Quarter: 2015Q4

REPORT INFORMATION
  Report Type: Spontaneous
  Country: US (occurrence: US)
  Receive Date: 20151027
  Receipt Date: 20151027
  Transmission Date: 20160304
  Serious: No
  Sender: FDA-Public Use
  Company Number: US-ELI_LILLY_AND_COMPANY-US201010006855

PATIENT
  Age: 68 Year
  Sex: Female

DRUGS (3)
  1. FORTEO [Suspect]
     Active Substance: TERIPARATIDE
     Dosage: 20 UG, DAILY (1/D)
     Route: 065
  2. FORTEO [Suspect]
     Active Substance: TERIPARATIDE
     Indication: OSTEOPOROSIS
     Dosage: 20 UG, DAILY (1/D)
     Route: 065
     Dates: start: 201010
  3. CALCIUM [Concomitant]
     Active Substance: CALCIUM
     Indication: OSTEOPOROSIS
     Dosage: UNK, DAILY (1/D)

REACTIONS (13)
  - Cerebrovascular accident [Unknown]
  - Faeces discoloured [Not Recovered/Not Resolved]
  - Sensitivity of teeth [Unknown]
  - Intentional device misuse [Unknown]
  - Nausea [Unknown]
  - Abnormal faeces [Not Recovered/Not Resolved]
  - Memory impairment [Unknown]
  - Decreased appetite [Unknown]
  - Neck pain [Unknown]
  - Dizziness [Unknown]
  - Cholelithiasis [Unknown]
  - Confusional state [Unknown]
  - Diarrhoea [Not Recovered/Not Resolved]

NARRATIVE: CASE EVENT DATE: 201001
